FAERS Safety Report 23163245 (Version 1)
Quarter: 2023Q4

REPORT INFORMATION
  Report Type: Report from Study
  Country: CO (occurrence: None)
  Receive Date: 20231109
  Receipt Date: 20231109
  Transmission Date: 20240110
  Serious: Yes (Hospitalization)
  Sender: FDA-Public Use
  Company Number: 2023A251731

PATIENT
  Age: 74 Year
  Sex: Female
  Weight: 45 kg

DRUGS (2)
  1. LYNPARZA [Suspect]
     Active Substance: OLAPARIB
     Indication: Neoplasm malignant
     Route: 048
     Dates: start: 20220601
  2. LYNPARZA [Suspect]
     Active Substance: OLAPARIB
     Indication: Nipple resection
     Route: 048
     Dates: start: 20220601

REACTIONS (1)
  - Pulmonary oedema [Recovering/Resolving]
